FAERS Safety Report 9274701 (Version 3)
Quarter: 2013Q4

REPORT INFORMATION
  Report Type: Spontaneous
  Country: US (occurrence: US)
  Receive Date: 20130507
  Receipt Date: 20131014
  Transmission Date: 20140711
  Serious: Yes (Hospitalization)
  Sender: FDA-Public Use
  Company Number: US-B.I. PHARMACEUTICALS,INC./RIDGEFIELD-2013-BI-12277BP

PATIENT
  Sex: Male

DRUGS (17)
  1. MICARDIS HCT TABLETS [Suspect]
     Indication: HYPERTENSION
     Dosage: DOSE PER APPLICATION: 40 MG / 12.5 MG; DAILY DOSE: 40 MG/ 12.5 MG
     Route: 048
     Dates: start: 2010
  2. MICARDIS HCT TABLETS [Suspect]
     Dosage: STRENGTH: 40 MG / 12.5 MG; DAILY DOSE: 40 MG/ 12.5 MG
     Route: 048
     Dates: start: 2010
  3. XANAX [Concomitant]
     Indication: ANXIETY
     Route: 048
     Dates: start: 1983
  4. LEVOTHYROXINE [Concomitant]
     Indication: HYPOTHYROIDISM
     Dosage: 88 MG
     Route: 048
     Dates: start: 2010
  5. CARISOPRODOL [Concomitant]
     Route: 048
  6. PREDNISONE [Concomitant]
     Indication: DYSPNOEA
     Dosage: 20 MG
     Route: 048
     Dates: start: 2000
  7. FLUOXETINE [Concomitant]
     Route: 048
  8. SINGULAIR [Concomitant]
     Indication: DYSPNOEA
     Dosage: 10 MG
     Route: 048
     Dates: start: 1999
  9. METFORMIN [Concomitant]
     Indication: DIABETES MELLITUS
     Dosage: 1000 MG
     Route: 048
     Dates: start: 2012
  10. CITALOPRAM [Concomitant]
     Dosage: 20 MG
     Route: 048
     Dates: start: 2008
  11. ADVAIR [Concomitant]
     Route: 048
  12. HYDROCODONE [Concomitant]
     Indication: BACK PAIN
     Dosage: 10-325
     Route: 048
     Dates: start: 1992
  13. SIMVASTATIN [Concomitant]
     Indication: BLOOD CHOLESTEROL INCREASED
     Dosage: 20 MG
     Route: 048
     Dates: start: 2008
  14. ACIPHEX [Concomitant]
     Indication: GASTROOESOPHAGEAL REFLUX DISEASE
     Dosage: 20 MG
     Route: 048
     Dates: start: 2008
  15. LYRICA [Concomitant]
     Route: 048
  16. DICYCLOMINE [Concomitant]
     Indication: IRRITABLE BOWEL SYNDROME
     Route: 048
     Dates: start: 2008
  17. VITAMIN D [Concomitant]
     Route: 048

REACTIONS (4)
  - Dehydration [Recovered/Resolved]
  - Diarrhoea [Recovered/Resolved]
  - Dyspnoea [Not Recovered/Not Resolved]
  - Fatigue [Not Recovered/Not Resolved]
